FAERS Safety Report 5526014-6 (Version None)
Quarter: 2007Q4

REPORT INFORMATION
  Report Type: 
  Country: None (occurrence: None)
  Receive Date: 20071126
  Receipt Date: 20071126
  Transmission Date: 20080405
  Serious: Yes (Hospitalization, Other)
  Sender: FDA-Public Use
  Company Number: JP-BOEHRINGER INGELHEIM PHARMACEUTICALS, INC.-2007-BP-17704NB

PATIENT
  Sex: Female
  Weight: 65 kg

DRUGS (4)
  1. BI-SIFROL TABLETS [Suspect]
     Indication: PARKINSON'S DISEASE
     Route: 048
     Dates: start: 20061109
  2. EC-DOPARL [Concomitant]
     Indication: PARKINSON'S DISEASE
     Route: 048
     Dates: start: 20060919
  3. ONEALFA [Concomitant]
     Indication: OSTEOPOROSIS
     Route: 048
     Dates: start: 20061012
  4. EBRANTIL [Concomitant]
     Indication: NEUROGENIC BLADDER
     Route: 048
     Dates: start: 20061002

REACTIONS (5)
  - EYELID OEDEMA [None]
  - GENERALISED ERYTHEMA [None]
  - INTERSTITIAL LUNG DISEASE [None]
  - OEDEMA PERIPHERAL [None]
  - POSTURE ABNORMAL [None]
